FAERS Safety Report 9717455 (Version 2)
Quarter: 2015Q3

REPORT INFORMATION
  Report Type: Spontaneous
  Country: US (occurrence: US)
  Receive Date: 20131127
  Receipt Date: 20150803
  Transmission Date: 20151125
  Serious: No
  Sender: FDA-Public Use
  Company Number: US-GILEAD-2009-0019773

PATIENT
  Age: 82 Year
  Sex: Male
  Weight: 76.66 kg

DRUGS (9)
  1. LETAIRIS [Suspect]
     Active Substance: AMBRISENTAN
     Indication: PULMONARY ARTERIAL HYPERTENSION
     Route: 048
     Dates: start: 20080801
  2. K-DUR [Concomitant]
     Active Substance: POTASSIUM CHLORIDE
  3. COUMADIN [Concomitant]
     Active Substance: WARFARIN SODIUM
  4. ANTARA [Concomitant]
     Active Substance: FENOFIBRATE
  5. PAXIL [Concomitant]
     Active Substance: PAROXETINE HYDROCHLORIDE
  6. MICARDIS [Concomitant]
     Active Substance: TELMISARTAN
  7. ATORVASTATIN CALCIUM/AMLODIPINE BESILATE [Concomitant]
  8. REVATIO [Concomitant]
     Active Substance: SILDENAFIL CITRATE
  9. GABAPENTIN. [Concomitant]
     Active Substance: GABAPENTIN

REACTIONS (2)
  - Nasal congestion [Unknown]
  - Peripheral swelling [Unknown]

NARRATIVE: CASE EVENT DATE: 20080815
